FAERS Safety Report 26187032 (Version 1)
Quarter: 2025Q4

REPORT INFORMATION
  Report Type: Spontaneous
  Country: US (occurrence: US)
  Receive Date: 20251222
  Receipt Date: 20251222
  Transmission Date: 20260117
  Serious: Yes (Death)
  Sender: FERRING
  Company Number: US-FERRINGPH-2025FE07443

PATIENT

DRUGS (1)
  1. ADSTILADRIN [Suspect]
     Active Substance: NADOFARAGENE FIRADENOVEC-VNCG
     Indication: Bladder cancer stage 0, with cancer in situ
     Dosage: 75 ML
     Route: 043
     Dates: start: 20241217, end: 20250917

REACTIONS (1)
  - Cardiac disorder [Fatal]
